FAERS Safety Report 21034069 (Version 1)
Quarter: 2022Q3

REPORT INFORMATION
  Report Type: Spontaneous
  Country: US (occurrence: US)
  Receive Date: 20220701
  Receipt Date: 20220701
  Transmission Date: 20221026
  Serious: Yes (Other)
  Sender: FDA-Public Use
  Company Number: US-009507513-2206USA008636

PATIENT
  Age: 77 Year
  Sex: Male

DRUGS (2)
  1. TICE BCG [Suspect]
     Active Substance: BACILLUS CALMETTE-GUERIN SUBSTRAIN TICE LIVE ANTIGEN
     Indication: Transitional cell carcinoma
     Dosage: UNK
     Route: 043
     Dates: start: 2009, end: 2012
  2. TICE BCG [Suspect]
     Active Substance: BACILLUS CALMETTE-GUERIN SUBSTRAIN TICE LIVE ANTIGEN
     Indication: Bladder cancer

REACTIONS (1)
  - Disseminated Bacillus Calmette-Guerin infection [Recovering/Resolving]

NARRATIVE: CASE EVENT DATE: 20140621
